FAERS Safety Report 8765449 (Version 2)
Quarter: 2012Q4

REPORT INFORMATION
  Report Type: 
  Country: PL (occurrence: PL)
  Receive Date: 20120903
  Receipt Date: 20120913
  Transmission Date: 20130627
  Serious: Yes (Other)
  Sender: FDA-Public Use
  Company Number: PL-PAR PHARMACEUTICAL, INC-2012SCPR004598

PATIENT

DRUGS (4)
  1. HYDROXYUREA [Suspect]
     Indication: ESSENTIAL THROMBOCYTHAEMIA
     Dosage: 0.5 g, daily
     Route: 065
  2. HYDROXYUREA [Suspect]
     Dosage: 1 g, daily
     Route: 065
  3. HYDROXYUREA [Suspect]
     Dosage: 0.5 g, daily
     Route: 065
  4. PLATELET AGGREGATION INHIBITORS EXCL.HEPARIN [Concomitant]
     Indication: ESSENTIAL THROMBOCYTHAEMIA
     Dosage: 250 mg, Every 12 hours
     Route: 048

REACTIONS (4)
  - Pulmonary toxicity [Recovered/Resolved]
  - Respiratory failure [Unknown]
  - Emphysema [Not Recovered/Not Resolved]
  - Pulmonary fibrosis [Recovered/Resolved]
